FAERS Safety Report 12397244 (Version 1)
Quarter: 2016Q2

REPORT INFORMATION
  Report Type: Spontaneous
  Country: US (occurrence: US)
  Receive Date: 20160524
  Receipt Date: 20160524
  Transmission Date: 20160815
  Serious: No
  Sender: FDA-Public Use
  Company Number: US-PFIZER INC-2016243423

PATIENT
  Age: 7 Year
  Sex: Male
  Weight: 20 kg

DRUGS (3)
  1. KEPPRA [Concomitant]
     Active Substance: LEVETIRACETAM
     Indication: SEIZURE
     Dosage: 7 ML, DAILY, 100 MG/ML (3 ML IN MORNING 4 ML IN EVENING)
  2. ETHOSUXIMIDE. [Suspect]
     Active Substance: ETHOSUXIMIDE
     Indication: EPILEPSY
     Dosage: 8 ML, 2X/DAY, 250MG/5 ML SOLUTION
     Dates: start: 201509
  3. ALBUTEROL. [Concomitant]
     Active Substance: ALBUTEROL
     Indication: PRIMARY CILIARY DYSKINESIA
     Dosage: 2 TO 4 PUFF PER DAY

REACTIONS (2)
  - Drug ineffective [Not Recovered/Not Resolved]
  - Psychomotor hyperactivity [Not Recovered/Not Resolved]

NARRATIVE: CASE EVENT DATE: 2015
